FAERS Safety Report 8208977 (Version 3)
Quarter: 2013Q3

REPORT INFORMATION
  Report Type: Spontaneous
  Country: KR (occurrence: KR)
  Receive Date: 20111028
  Receipt Date: 20130816
  Transmission Date: 20140515
  Serious: Yes (Other)
  Sender: FDA-Public Use
  Company Number: KR-ELI_LILLY_AND_COMPANY-KR201110003651

PATIENT
  Age: 65 Year
  Sex: Female

DRUGS (3)
  1. DULOXETINE HYDROCHLORIDE [Suspect]
     Dosage: 30 MG, QD
  2. DULOXETINE HYDROCHLORIDE [Suspect]
     Dosage: 60 MG, QD
  3. CLONAZEPAM [Concomitant]
     Dosage: 5 MG, OTHER

REACTIONS (1)
  - Liver injury [Recovering/Resolving]
